FAERS Safety Report 6525539-4 (Version None)
Quarter: 2010Q1

REPORT INFORMATION
  Report Type: 
  Country: None (occurrence: None)
  Receive Date: 20100104
  Receipt Date: 20091222
  Transmission Date: 20100710
  Serious: Yes (Other)
  Sender: FDA-Public Use
  Company Number: US-JNJCH-2009032941

PATIENT
  Age: 50 Year
  Sex: Female
  Weight: 63.1 kg

DRUGS (1)
  1. LISTERINE WHITENING VIBRANT WHITE PRE-BRUSH RINSE [Suspect]
     Indication: DENTAL CARE
     Dosage: TEXT:UNSPECIFIED ONE TIME PER DAY
     Route: 048

REACTIONS (2)
  - APPLICATION SITE BURN [None]
  - STOMATITIS [None]
